FAERS Safety Report 11858065 (Version 2)
Quarter: 2016Q1

REPORT INFORMATION
  Report Type: Spontaneous
  Country: JP (occurrence: JP)
  Receive Date: 20151222
  Receipt Date: 20160113
  Transmission Date: 20160526
  Serious: Yes (Death)
  Sender: FDA-Public Use
  Company Number: PHJP2015JP023110

PATIENT
  Age: 56 Year
  Sex: Male

DRUGS (1)
  1. NEORAL [Suspect]
     Active Substance: CYCLOSPORINE
     Indication: INTERSTITIAL LUNG DISEASE
     Dosage: UNK
     Route: 048
     Dates: end: 201512

REACTIONS (5)
  - Product use issue [Unknown]
  - Renal impairment [Unknown]
  - Interstitial lung disease [Fatal]
  - Immunosuppressant drug level increased [Unknown]
  - Oral administration complication [Unknown]
